FAERS Safety Report 9166259 (Version 1)
Quarter: 2013Q1

REPORT INFORMATION
  Report Type: Spontaneous
  Country: FR (occurrence: FR)
  Receive Date: 20130315
  Receipt Date: 20130315
  Transmission Date: 20140127
  Serious: Yes (Life-Threatening)
  Sender: FDA-Public Use
  Company Number: FR-ASTRAZENECA-2013SE16545

PATIENT
  Age: 23103 Day
  Sex: Female

DRUGS (10)
  1. DIPRIVAN [Suspect]
     Route: 042
     Dates: start: 20120228, end: 20120228
  2. PERFALGAN [Suspect]
     Route: 042
     Dates: start: 20120228, end: 20120228
  3. SUFENTA [Suspect]
     Route: 042
     Dates: start: 20120228, end: 20120228
  4. TRACRIUM [Suspect]
     Route: 042
     Dates: start: 20120228, end: 20120228
  5. HYPNOVEL [Suspect]
     Route: 042
     Dates: start: 20120228, end: 20120228
  6. KETAMINE [Suspect]
     Route: 042
     Dates: start: 20120228, end: 20120228
  7. CEFAZOLIN [Suspect]
     Route: 042
     Dates: start: 20120228, end: 20120228
  8. ACUPAN [Suspect]
     Route: 042
     Dates: start: 20120228, end: 20120228
  9. PROFENID [Suspect]
     Route: 042
     Dates: start: 20120228, end: 20120228
  10. DROLEPTAN [Suspect]
     Route: 042
     Dates: start: 20120228, end: 20120228

REACTIONS (1)
  - Shock [Recovered/Resolved]
